FAERS Safety Report 7755665-3 (Version None)
Quarter: 2011Q3

REPORT INFORMATION
  Report Type: 
  Country: None (occurrence: None)
  Receive Date: 20110916
  Receipt Date: 20110914
  Transmission Date: 20111222
  Serious: No
  Sender: FDA-Public Use
  Company Number: US-B.I. PHARMACEUTICALS,INC./RIDGEFIELD-2011-BP-20056BP

PATIENT
  Sex: Female

DRUGS (4)
  1. LIVALO [Concomitant]
  2. TRADJENTA [Suspect]
     Indication: DIABETES MELLITUS
     Dosage: 5 MG
     Dates: end: 20110812
  3. CHANTIX [Concomitant]
  4. METFORMIN HCL [Concomitant]

REACTIONS (4)
  - NAUSEA [None]
  - PARAESTHESIA [None]
  - DIZZINESS [None]
  - BLOOD GLUCOSE INCREASED [None]
